FAERS Safety Report 25136143 (Version 1)
Quarter: 2025Q1

REPORT INFORMATION
  Report Type: Spontaneous
  Country: AE (occurrence: AE)
  Receive Date: 20250328
  Receipt Date: 20250328
  Transmission Date: 20250408
  Serious: Yes (Hospitalization, Other)
  Sender: SCIEGEN PHARMACEUTICALS INC
  Company Number: AE-SCIEGENP-2025SCLIT00052

PATIENT
  Age: 40 Year
  Sex: Male

DRUGS (4)
  1. METFORMIN HYDROCHLORIDE [Suspect]
     Active Substance: METFORMIN HYDROCHLORIDE
     Indication: Type 2 diabetes mellitus
     Route: 065
  2. ALOGLIPTIN [Suspect]
     Active Substance: ALOGLIPTIN
     Indication: Type 2 diabetes mellitus
     Route: 065
  3. EMPAGLIFLOZIN [Suspect]
     Active Substance: EMPAGLIFLOZIN
     Indication: Type 2 diabetes mellitus
     Route: 065
  4. METHYLCOBALAMIN [Suspect]
     Active Substance: METHYLCOBALAMIN
     Indication: Type 2 diabetes mellitus
     Route: 065

REACTIONS (1)
  - Haemolytic anaemia [Recovered/Resolved]
